FAERS Safety Report 8175356-7 (Version None)
Quarter: 2012Q1

REPORT INFORMATION
  Report Type: 
  Country: None (occurrence: None)
  Receive Date: 20120229
  Receipt Date: 20120221
  Transmission Date: 20120608
  Serious: Yes (Death, Hospitalization, Other)
  Sender: FDA-Public Use
  Company Number: US-PFIZER INC-2012007798

PATIENT
  Sex: Female
  Weight: 59 kg

DRUGS (14)
  1. NAMENDA [Concomitant]
     Dosage: 10 MG, 1X/DAY
     Route: 048
  2. MIRALAX [Concomitant]
     Dosage: DAILY
     Route: 048
  3. ROSUVASTATIN [Concomitant]
  4. SPIRONOLACTONE [Concomitant]
  5. COMPAZINE [Concomitant]
     Indication: NAUSEA
     Dosage: 10 MG, 4X/DAY AS NEEDED
     Route: 048
  6. SUTENT [Suspect]
     Indication: FALLOPIAN TUBE CANCER METASTATIC
     Dosage: 37.5 MG, 1X/DAY
     Route: 048
     Dates: start: 20111201, end: 20120103
  7. COUMADIN [Concomitant]
     Dosage: 1MG DAILY, EXCEPT 2 MG ON WEDNESDAY AND SATURDAY
     Route: 048
  8. CITALOPRAM [Concomitant]
     Dosage: 20 MG, 1X/DAY
     Route: 048
  9. TOPROL-XL [Concomitant]
     Dosage: AT BEDTIME
     Route: 048
  10. FUROSEMIDE [Concomitant]
  11. SANDOSTATIN LAR [Suspect]
  12. LISINOPRIL [Concomitant]
  13. AMIODARONE [Concomitant]
  14. SYNTHROID [Concomitant]
     Dosage: 50 UG, 1X/DAY
     Route: 048

REACTIONS (12)
  - FATIGUE [None]
  - HYPOTENSION [None]
  - PETECHIAE [None]
  - CARDIAC FAILURE CONGESTIVE [None]
  - NAUSEA [None]
  - RENAL FAILURE [None]
  - HYPOPHAGIA [None]
  - RECTAL HAEMORRHAGE [None]
  - VOMITING [None]
  - ACUTE HEPATIC FAILURE [None]
  - HEPATITIS ACUTE [None]
  - COAGULOPATHY [None]
